FAERS Safety Report 16398226 (Version 1)
Quarter: 2019Q2

REPORT INFORMATION
  Report Type: Report from Study
  Country: CA (occurrence: CA)
  Receive Date: 20190606
  Receipt Date: 20190606
  Transmission Date: 20190711
  Serious: Yes (Hospitalization)
  Sender: FDA-Public Use
  Company Number: CA-EISAI MEDICAL RESEARCH-EC-2019-055476

PATIENT
  Sex: Male

DRUGS (4)
  1. BANZEL [Suspect]
     Active Substance: RUFINAMIDE
     Dosage: DOSE AND FREQUENCY UNKNOWN
     Route: 048
     Dates: end: 2019
  2. BANZEL [Suspect]
     Active Substance: RUFINAMIDE
     Indication: EPILEPTIC ENCEPHALOPATHY
     Dosage: DOSE AND FREQUENCY UNKNOWN
     Route: 048
     Dates: start: 201802
  3. LAMOTRIGINE. [Concomitant]
     Active Substance: LAMOTRIGINE
  4. LEVETIRACETAM. [Concomitant]
     Active Substance: LEVETIRACETAM

REACTIONS (2)
  - Drug ineffective [Unknown]
  - Fall [Unknown]
